FAERS Safety Report 6127798-9 (Version None)
Quarter: 2009Q1

REPORT INFORMATION
  Report Type: 
  Country: None (occurrence: None)
  Receive Date: 20090323
  Receipt Date: 20090309
  Transmission Date: 20090719
  Serious: Yes (Other)
  Sender: FDA-Public Use
  Company Number: US-AVENTIS-200912137US

PATIENT
  Age: 85 Year
  Sex: Female

DRUGS (1)
  1. LASIX [Suspect]
     Dosage: DOSE: UNK
     Route: 048

REACTIONS (2)
  - CHOROIDAL DETACHMENT [None]
  - THERAPEUTIC RESPONSE UNEXPECTED [None]
